FAERS Safety Report 4602239-9 (Version None)
Quarter: 2005Q2

REPORT INFORMATION
  Report Type: 
  Country: None (occurrence: None)
  Receive Date: 20050201
  Receipt Date: 20040806
  Transmission Date: 20051028
  Serious: Yes (Hospitalization, Other)
  Sender: FDA-Public Use
  Company Number: 200419857BWH

PATIENT
  Age: 58 Year
  Sex: Female
  Weight: 79.8331 kg

DRUGS (6)
  1. AVELOX [Suspect]
     Indication: BRONCHITIS
     Dosage: 400 MG, TOTAL DAILY, ORAL
     Route: 048
     Dates: start: 20040727
  2. AVELOX [Suspect]
     Indication: WHEEZING
     Dosage: 400 MG, TOTAL DAILY, ORAL
     Route: 048
     Dates: start: 20040727
  3. SYNTHROID [Concomitant]
  4. LEVAQUIN [Concomitant]
  5. PREDNISONE [Concomitant]
  6. MEDROL [Concomitant]

REACTIONS (9)
  - ANAPHYLACTIC REACTION [None]
  - BLOOD PRESSURE DECREASED [None]
  - CYANOSIS [None]
  - DYSPNOEA [None]
  - HEART RATE INCREASED [None]
  - OROPHARYNGEAL SWELLING [None]
  - OXYGEN SATURATION DECREASED [None]
  - RASH GENERALISED [None]
  - THROAT TIGHTNESS [None]
